FAERS Safety Report 11158033 (Version 1)
Quarter: 2015Q2

REPORT INFORMATION
  Report Type: Spontaneous
  Country: US (occurrence: None)
  Receive Date: 20150602
  Receipt Date: 20150602
  Transmission Date: 20150821
  Serious: Yes (Other)
  Sender: FDA-Public Use
  Company Number: None

PATIENT

DRUGS (10)
  1. EPHEDRINE SYRINGE [Suspect]
     Active Substance: EPHEDRINE
  2. EPHEDRINE SYRINGE [Suspect]
     Active Substance: EPHEDRINE
  3. NEOSTIGMINE [Suspect]
     Active Substance: NEOSTIGMINE
  4. PHENYLEPHRINE [Suspect]
     Active Substance: PHENYLEPHRINE\PHENYLEPHRINE HYDROCHLORIDE
  5. EPHEDRINE SYRINGE [Suspect]
     Active Substance: EPHEDRINE
  6. PHENYLEPHRINE [Suspect]
     Active Substance: PHENYLEPHRINE\PHENYLEPHRINE HYDROCHLORIDE
  7. FENTANYL. [Suspect]
     Active Substance: FENTANYL
  8. FENTANYL. [Suspect]
     Active Substance: FENTANYL
  9. FENTANYL. [Suspect]
     Active Substance: FENTANYL
  10. PHENYLEPHRINE [Suspect]
     Active Substance: PHENYLEPHRINE\PHENYLEPHRINE HYDROCHLORIDE

REACTIONS (2)
  - Drug diversion [None]
  - Device physical property issue [None]
